FAERS Safety Report 6597817-4 (Version None)
Quarter: 2010Q1

REPORT INFORMATION
  Report Type: 
  Country: None (occurrence: None)
  Receive Date: 20100219
  Receipt Date: 20100204
  Transmission Date: 20100710
  Serious: Yes (Death, Hospitalization)
  Sender: FDA-Public Use
  Company Number: 95076

PATIENT
  Age: 33 Year
  Sex: Female

DRUGS (2)
  1. METHOTREXATE [Suspect]
     Indication: DERMATOMYOSITIS
     Dosage: 10MG/WEEK; 2.5MG/WEEK; 7.5MG/WEEK
  2. AZATHIOPRINE SODIUM [Suspect]
     Indication: DERMATOMYOSITIS
     Dosage: 150 MG/KG/DAY; 25 MG/DAY; 100 MG/DAY; 75

REACTIONS (8)
  - CHOLESTASIS [None]
  - EPSTEIN-BARR VIRUS ASSOCIATED LYMPHOPROLIFERATIVE DISORDER [None]
  - HEPATIC ENZYME INCREASED [None]
  - MULTI-ORGAN FAILURE [None]
  - NORMOCHROMIC NORMOCYTIC ANAEMIA [None]
  - PYREXIA [None]
  - SPLENOMEGALY [None]
  - TUMOUR LYSIS SYNDROME [None]
